FAERS Safety Report 9337663 (Version 1)
Quarter: 2013Q2

REPORT INFORMATION
  Report Type: Spontaneous
  Country: US (occurrence: US)
  Receive Date: 20130607
  Receipt Date: 20130607
  Transmission Date: 20140414
  Serious: No
  Sender: FDA-Public Use
  Company Number: US-009507513-1305USA017578

PATIENT
  Age: 52 Year
  Sex: Female
  Weight: 81.63 kg

DRUGS (4)
  1. VICTRELIS [Suspect]
     Dosage: 4 CAPSULES (800 MG) THREE TIMES A DAY (EVERY 7-9 HOURS)
     Route: 048
     Dates: start: 20130503
  2. PEGASYS [Suspect]
  3. RIBAPAK [Suspect]
     Dosage: 1000/DAY
  4. HYDROXYZINE HYDROCHLORIDE [Concomitant]
     Dosage: UNK

REACTIONS (1)
  - Cough [Unknown]
